FAERS Safety Report 10339568 (Version 1)
Quarter: 2014Q3

REPORT INFORMATION
  Report Type: Spontaneous
  Country: AR (occurrence: AR)
  Receive Date: 20140724
  Receipt Date: 20140724
  Transmission Date: 20150326
  Serious: Yes (Other)
  Sender: FDA-Public Use
  Company Number: PHHY2014AR090155

PATIENT
  Sex: Male

DRUGS (3)
  1. DRONEDARONE [Interacting]
     Active Substance: DRONEDARONE
  2. DIGOXIN. [Suspect]
     Active Substance: DIGOXIN
  3. AMIODARONE [Interacting]
     Active Substance: AMIODARONE

REACTIONS (2)
  - Supraventricular extrasystoles [Unknown]
  - Drug interaction [Unknown]
